APPROVED DRUG PRODUCT: BORTEZOMIB
Active Ingredient: BORTEZOMIB
Strength: 3.5MG/VIAL
Dosage Form/Route: INJECTABLE;INTRAVENOUS, SUBCUTANEOUS
Application: A204405 | Product #001
Applicant: ACCORD HEALTHCARE INC
Approved: Jul 26, 2022 | RLD: No | RS: No | Type: DISCN